FAERS Safety Report 13879533 (Version 3)
Quarter: 2017Q3

REPORT INFORMATION
  Report Type: Spontaneous
  Country: IT (occurrence: IT)
  Receive Date: 20170817
  Receipt Date: 20170829
  Transmission Date: 20171127
  Serious: Yes (Death, Hospitalization, Other)
  Sender: FDA-Public Use
  Company Number: IT-BRISTOL-MYERS SQUIBB COMPANY-BMS-2017-073823

PATIENT
  Age: 71 Year
  Sex: Male
  Weight: 75 kg

DRUGS (1)
  1. OPDIVO [Suspect]
     Active Substance: NIVOLUMAB
     Indication: LUNG NEOPLASM MALIGNANT
     Dosage: 225 MG, QCYCLE
     Route: 042
     Dates: start: 20170526, end: 20170623

REACTIONS (8)
  - Asthenia [Fatal]
  - Dysphonia [Fatal]
  - Dysphagia [Fatal]
  - Respiratory failure [Fatal]
  - Myasthenia gravis [Fatal]
  - Extraocular muscle paresis [Fatal]
  - Visual impairment [Fatal]
  - Eyelid ptosis [Fatal]

NARRATIVE: CASE EVENT DATE: 20170623
